FAERS Safety Report 9326665 (Version 1)
Quarter: 2013Q2

REPORT INFORMATION
  Report Type: Spontaneous
  Country: US (occurrence: US)
  Receive Date: 20130604
  Receipt Date: 20130604
  Transmission Date: 20140414
  Serious: No
  Sender: FDA-Public Use
  Company Number: US-AMGEN-USASP2013032083

PATIENT
  Sex: Female

DRUGS (2)
  1. PROLIA [Suspect]
     Indication: OSTEOPOROSIS POSTMENOPAUSAL
     Dosage: UNK
     Dates: start: 201209
  2. ENBREL [Suspect]
     Indication: ARTHRALGIA
     Dosage: UNK

REACTIONS (5)
  - Arthralgia [Unknown]
  - Rheumatoid factor positive [Unknown]
  - Systemic lupus erythematosus rash [Unknown]
  - White blood cell count increased [Unknown]
  - Antinuclear antibody increased [Unknown]
